FAERS Safety Report 25304953 (Version 1)
Quarter: 2025Q2

REPORT INFORMATION
  Report Type: Spontaneous
  Country: US (occurrence: US)
  Receive Date: 20250513
  Receipt Date: 20250513
  Transmission Date: 20250716
  Serious: Yes (Other)
  Sender: NAARI PHARMA
  Company Number: US-NAARI B.V.-2025NP000033

PATIENT
  Sex: Female

DRUGS (1)
  1. LEVONORGESTREL [Suspect]
     Active Substance: LEVONORGESTREL
     Indication: Post coital contraception
     Route: 065

REACTIONS (2)
  - Pregnancy after post coital contraception [Unknown]
  - Drug ineffective [Unknown]
